FAERS Safety Report 8511128 (Version 4)
Quarter: 2013Q4

REPORT INFORMATION
  Report Type: Spontaneous
  Country: US (occurrence: US)
  Receive Date: 20120413
  Receipt Date: 20131209
  Transmission Date: 20140711
  Serious: Yes (Hospitalization, Other)
  Sender: FDA-Public Use
  Company Number: US-PFIZER INC-2012088367

PATIENT
  Age: 65 Year
  Sex: Female
  Weight: 95.69 kg

DRUGS (4)
  1. REVATIO [Suspect]
     Indication: CARDIAC DISORDER
     Dosage: 20 MG, 3X/DAY
     Route: 048
     Dates: start: 2011, end: 201311
  2. REVATIO [Suspect]
     Indication: LUNG DISORDER
  3. REVATIO [Suspect]
     Indication: PULMONARY HYPERTENSION
  4. LASIX [Concomitant]
     Indication: DIURETIC THERAPY
     Dosage: 20 MG DAILY IN THE MORNING

REACTIONS (3)
  - Pneumonia [Unknown]
  - Malaise [Unknown]
  - Carbon dioxide increased [Recovered/Resolved]
